FAERS Safety Report 24552947 (Version 1)
Quarter: 2024Q4

REPORT INFORMATION
  Report Type: Spontaneous
  Country: US (occurrence: US)
  Receive Date: 20241027
  Receipt Date: 20241027
  Transmission Date: 20250115
  Serious: Yes (Death, Other)
  Sender: AMGEN
  Company Number: US-AMGEN-USASP2024208482

PATIENT

DRUGS (1)
  1. BEVACIZUMAB [Suspect]
     Active Substance: BEVACIZUMAB
     Indication: Glioblastoma
     Dosage: UNK
     Route: 065

REACTIONS (5)
  - Death [Fatal]
  - Metastases to meninges [Unknown]
  - Glioblastoma [Unknown]
  - Neurotoxicity [Unknown]
  - Skin toxicity [Unknown]
